FAERS Safety Report 5108749-2 (Version None)
Quarter: 2006Q3

REPORT INFORMATION
  Report Type: 
  Country: None (occurrence: None)
  Receive Date: 20060915
  Receipt Date: 20060915
  Transmission Date: 20061208
  Serious: Yes (Hospitalization)
  Sender: FDA-Public Use
  Company Number: None

PATIENT
  Age: 71 Year
  Sex: Female
  Weight: 72.1219 kg

DRUGS (7)
  1. VELCADE [Suspect]
     Indication: GLIOBLASTOMA MULTIFORME
     Dosage: 1.72 MG 2 TWICE A WEEK IV
     Route: 042
     Dates: start: 20060508, end: 20060519
  2. TEMODAR [Suspect]
     Dates: start: 20060508, end: 20060520
  3. SULFAMGTHOXAXOLE/TMP [Concomitant]
  4. KEPPRA [Concomitant]
  5. SYNTHROID [Concomitant]
  6. GLB/METFORM [Concomitant]
  7. NEXIUM [Concomitant]

REACTIONS (3)
  - ABDOMINAL PAIN [None]
  - BLOOD GLUCOSE DECREASED [None]
  - LOSS OF CONSCIOUSNESS [None]
